FAERS Safety Report 14319777 (Version 1)
Quarter: 2017Q4

REPORT INFORMATION
  Report Type: Spontaneous
  Country: US (occurrence: US)
  Receive Date: 20171222
  Receipt Date: 20171222
  Transmission Date: 20180321
  Serious: No
  Sender: FDA-Public Use
  Company Number: US-ELI_LILLY_AND_COMPANY-US201712008335

PATIENT
  Sex: Male

DRUGS (1)
  1. HUMATROPE [Suspect]
     Active Substance: SOMATROPIN
     Indication: BRAIN INJURY
     Dosage: UNK UNK, UNKNOWN
     Route: 065
     Dates: start: 201706

REACTIONS (3)
  - Off label use [Unknown]
  - Disturbance in attention [Unknown]
  - Drug dose omission [Unknown]
